FAERS Safety Report 6354341-1 (Version None)
Quarter: 2009Q3

REPORT INFORMATION
  Report Type: 
  Country: None (occurrence: None)
  Receive Date: 20090909
  Receipt Date: 20090831
  Transmission Date: 20100115
  Serious: Yes (Death)
  Sender: FDA-Public Use
  Company Number: CLOF-1000681

PATIENT
  Age: 75 Year
  Sex: Male
  Weight: 81 kg

DRUGS (4)
  1. EVOLTRA (CLOFARABINE) [Suspect]
     Indication: ACUTE MYELOID LEUKAEMIA
     Dosage: 40 MG, QDX5, INTRAVENOUS
     Route: 042
     Dates: start: 20090827, end: 20090827
  2. TEMSIROLIMUS (TEMISIROLIMUS) SOLUTION FOR INFUSION [Suspect]
     Indication: ACUTE MYELOID LEUKAEMIA
     Dosage: 50 MG, 1X/W, INTRAVENOUS
     Route: 042
     Dates: start: 20090827, end: 20090827
  3. DEXAMETHASONE (DEXAMETHASONE) INTRAVENOUS INFUSION [Concomitant]
  4. CHLORPHENAMINE MALEATE (CHLORPHENAMINE MALEATE) INTRAVENOUS INFUSION [Concomitant]

REACTIONS (1)
  - CARDIAC ARREST [None]
